FAERS Safety Report 8159630-6 (Version None)
Quarter: 2012Q1

REPORT INFORMATION
  Report Type: 
  Country: None (occurrence: None)
  Receive Date: 20120223
  Receipt Date: 20120215
  Transmission Date: 20120608
  Serious: Yes (Hospitalization, Other)
  Sender: FDA-Public Use
  Company Number: US-UCBSA-051739

PATIENT
  Age: 19 Year
  Sex: Male
  Weight: 61 kg

DRUGS (7)
  1. OMEPRAZOLE [Concomitant]
     Indication: CROHN'S DISEASE
  2. MIRALAX [Concomitant]
     Indication: CROHN'S DISEASE
  3. PREDNISONE TAB [Concomitant]
     Indication: CROHN'S DISEASE
     Dates: start: 20071119, end: 20080212
  4. PREDNISONE TAB [Concomitant]
     Dates: start: 20110824, end: 20111103
  5. PREDNISONE TAB [Concomitant]
     Dates: start: 20110301, end: 20110503
  6. TACROLIMUS [Concomitant]
     Dates: start: 20110318
  7. CIMZIA [Suspect]
     Indication: CROHN'S DISEASE
     Route: 058
     Dates: start: 20100209

REACTIONS (2)
  - CROHN'S DISEASE [None]
  - PERIRECTAL ABSCESS [None]
